FAERS Safety Report 8619684-7 (Version None)
Quarter: 2012Q3

REPORT INFORMATION
  Report Type: 
  Country: None (occurrence: None)
  Receive Date: 20120824
  Receipt Date: 20120823
  Transmission Date: 20120928
  Serious: Yes (Hospitalization)
  Sender: FDA-Public Use
  Company Number: JP-PFIZER INC-2012040271

PATIENT
  Age: 72 Year
  Sex: Female
  Weight: 63 kg

DRUGS (14)
  1. LOPRESSOR [Concomitant]
     Indication: HYPERTENSION
     Dosage: 30 MG, DAILY
     Route: 048
  2. AMLODIPINE [Concomitant]
     Dosage: 5 MG, DAILY
     Dates: end: 20120124
  3. ZETIA [Concomitant]
     Dosage: UNK
     Route: 048
  4. ASPIRIN [Concomitant]
     Dosage: UNK
     Route: 048
  5. HUMALOG [Concomitant]
     Indication: DIABETES MELLITUS
     Dosage: UNK
     Route: 058
  6. NORVASC [Suspect]
     Indication: HYPERTENSION
     Dosage: 10 MG, DAILY
     Route: 048
     Dates: start: 20120124, end: 20120205
  7. MICARDIS [Concomitant]
     Indication: HYPERTENSION
     Dosage: 80 MG, DAILY
     Route: 048
  8. CRESTOR [Concomitant]
     Dosage: UNK
     Route: 048
  9. LANSOPRAZOLE [Concomitant]
     Dosage: 15 MG, DAILY
     Route: 048
     Dates: start: 20120124
  10. PURSENNID [Concomitant]
     Dosage: UNK
     Route: 048
  11. METFORMIN HCL [Concomitant]
     Dosage: UNK
     Route: 048
  12. PLAVIX [Concomitant]
     Dosage: UNK
     Route: 048
  13. MAGMITT [Concomitant]
     Dosage: UNK
     Route: 048
  14. JANUVIA [Concomitant]
     Dosage: UNK
     Route: 048

REACTIONS (3)
  - PLEURAL EFFUSION [None]
  - GENERALISED OEDEMA [None]
  - PULMONARY CONGESTION [None]
